FAERS Safety Report 12867893 (Version 3)
Quarter: 2018Q1

REPORT INFORMATION
  Report Type: Spontaneous
  Country: US (occurrence: US)
  Receive Date: 20161020
  Receipt Date: 20180123
  Transmission Date: 20180508
  Serious: No
  Sender: FDA-Public Use
  Company Number: US-AMGEN-USASP2016103165

PATIENT
  Age: 75 Year
  Sex: Female

DRUGS (2)
  1. TRICOR [Concomitant]
     Active Substance: FENOFIBRATE
  2. REPATHA [Suspect]
     Active Substance: EVOLOCUMAB
     Indication: BLOOD CHOLESTEROL INCREASED
     Dosage: UNK UNK, Q2WK
     Route: 065
     Dates: start: 201510

REACTIONS (2)
  - Blood triglycerides increased [Not Recovered/Not Resolved]
  - Drug dose omission [Unknown]
